FAERS Safety Report 23620817 (Version 1)
Quarter: 2024Q1

REPORT INFORMATION
  Report Type: Spontaneous
  Country: US (occurrence: None)
  Receive Date: 20240312
  Receipt Date: 20240312
  Transmission Date: 20240409
  Serious: No
  Sender: FDA-Public Use
  Company Number: 2024A046168

PATIENT
  Sex: Female

DRUGS (1)
  1. SAPHNELO [Suspect]
     Active Substance: ANIFROLUMAB\ANIFROLUMAB-FNIA

REACTIONS (4)
  - Musculoskeletal discomfort [Unknown]
  - Feeling abnormal [Unknown]
  - Chest discomfort [Unknown]
  - Cough [Unknown]
